FAERS Safety Report 20883928 (Version 1)
Quarter: 2022Q2

REPORT INFORMATION
  Report Type: Spontaneous
  Country: US (occurrence: None)
  Receive Date: 20220526
  Receipt Date: 20220526
  Transmission Date: 20220721
  Serious: Yes (Life-Threatening)
  Sender: FDA-Public Use
  Company Number: None

PATIENT
  Age: 26 Year
  Sex: Female
  Weight: 55.79 kg

DRUGS (2)
  1. INTRAUTERINE DEVICE [Suspect]
     Active Substance: INTRAUTERINE DEVICE
  2. KYLEENA [Suspect]
     Active Substance: LEVONORGESTREL

REACTIONS (4)
  - Pregnancy with contraceptive device [None]
  - Ectopic pregnancy [None]
  - Heavy menstrual bleeding [None]
  - Menstrual disorder [None]

NARRATIVE: CASE EVENT DATE: 20220425
